FAERS Safety Report 4301706-5 (Version None)
Quarter: 2004Q1

REPORT INFORMATION
  Report Type: 
  Country: None (occurrence: None)
  Receive Date: 20040126
  Receipt Date: 20031001
  Transmission Date: 20041129
  Serious: No
  Sender: FDA-Public Use
  Company Number: USA031048822

PATIENT
  Age: 12 Year

DRUGS (2)
  1. STRATTERA [Suspect]
  2. ALBUTEROL [Concomitant]

REACTIONS (3)
  - COUGH [None]
  - NASOPHARYNGITIS [None]
  - PSYCHOMOTOR HYPERACTIVITY [None]
